FAERS Safety Report 4354589-1 (Version None)
Quarter: 2004Q2

REPORT INFORMATION
  Report Type: 
  Country: None (occurrence: None)
  Receive Date: 20040506
  Receipt Date: 20040506
  Transmission Date: 20050107
  Serious: Yes (Hospitalization)
  Sender: FDA-Public Use
  Company Number: None

PATIENT
  Age: 60 Year
  Sex: Male
  Weight: 110.6777 kg

DRUGS (6)
  1. OLANZAPINE [Suspect]
     Indication: BIPOLAR DISORDER
     Dosage: 20MG QHS ORAL
     Route: 048
     Dates: start: 20040323, end: 20040426
  2. ASPIRIN [Concomitant]
  3. DIVALPROEX SODIUM [Concomitant]
  4. TRIAMTERENE AND HYDROCHLOROTHIAZIDE [Concomitant]
  5. TEMAZEPAM [Concomitant]
  6. TRAZODONE HCL [Concomitant]

REACTIONS (1)
  - DIABETES MELLITUS [None]
